FAERS Safety Report 4507794-5 (Version None)
Quarter: 2004Q4

REPORT INFORMATION
  Report Type: 
  Country: None (occurrence: None)
  Receive Date: 20041018
  Receipt Date: 20040706
  Transmission Date: 20050328
  Serious: No
  Sender: FDA-Public Use
  Company Number: 207264

PATIENT
  Age: 62 Year
  Sex: Male
  Weight: 102.5 kg

DRUGS (9)
  1. XOLAIR [Suspect]
     Indication: ASTHMA
     Dosage: 300 MG, Q2W, SUBCUTANEOUS
     Route: 058
     Dates: start: 20040420
  2. GUAIFENESIN (GUAIFENESIN) [Concomitant]
  3. COMBIVENT (IPRATROPIUM BROMIDE, ALBUTEROL, ALBUTEROL SULFATE) [Concomitant]
  4. ADVAIR (SALMETEROL XINAFOATE, FLUTICASONE PROPIONATE) [Concomitant]
  5. PREDNISONE [Concomitant]
  6. NASONEX (MOMETASONE FUORATE) [Concomitant]
  7. DERMADEX (DEXAMETHASONE) [Concomitant]
  8. K-DUR 10 [Concomitant]
  9. ATROVENT NEBULIZER (IPRATROPIUM BROMIDE) [Concomitant]

REACTIONS (1)
  - ALOPECIA [None]
